FAERS Safety Report 7634098-4 (Version None)
Quarter: 2011Q3

REPORT INFORMATION
  Report Type: 
  Country: None (occurrence: None)
  Receive Date: 20110725
  Receipt Date: 20110720
  Transmission Date: 20111222
  Serious: Yes (Death)
  Sender: FDA-Public Use
  Company Number: JP-ASTRAZENECA-2011SE41805

PATIENT
  Age: 76 Year
  Sex: Female

DRUGS (7)
  1. LEVOFLOXACIN HYDRATE [Concomitant]
     Indication: BRONCHITIS
     Route: 048
     Dates: start: 20110624, end: 20110629
  2. XYLOCAINE [Suspect]
     Route: 030
     Dates: start: 20110705, end: 20110705
  3. CEFOBID [Suspect]
     Indication: BRONCHITIS
     Route: 030
     Dates: start: 20110624, end: 20110624
  4. CEFOBID [Suspect]
     Route: 030
     Dates: start: 20110705, end: 20110705
  5. SURGAM [Concomitant]
     Indication: BRONCHITIS
     Route: 048
     Dates: start: 20110624, end: 20110629
  6. ASVERIN [Concomitant]
     Indication: BRONCHITIS
     Route: 048
     Dates: start: 20110624, end: 20110629
  7. XYLOCAINE [Suspect]
     Indication: PAIN MANAGEMENT
     Route: 030
     Dates: start: 20110624, end: 20110624

REACTIONS (1)
  - ANAPHYLACTIC SHOCK [None]
